FAERS Safety Report 13071382 (Version 1)
Quarter: 2016Q4

REPORT INFORMATION
  Report Type: Report from Study
  Country: US (occurrence: US)
  Receive Date: 20161229
  Receipt Date: 20161229
  Transmission Date: 20170207
  Serious: Yes (Hospitalization)
  Sender: FDA-Public Use
  Company Number: US-TAIHO ONCOLOGY INC-EU-2016-02525

PATIENT
  Age: 65 Year
  Sex: Male
  Weight: 78.09 kg

DRUGS (9)
  1. DRONABINOL. [Concomitant]
     Active Substance: DRONABINOL
     Dosage: NI
  2. LONSURF [Suspect]
     Active Substance: TIPIRACIL HYDROCHLORIDE\TRIFLURIDINE
     Indication: COLON CANCER STAGE IV
     Dosage: CYCLE 1
     Route: 048
     Dates: start: 20160801, end: 201608
  3. ZOFRAN [Concomitant]
     Active Substance: ONDANSETRON HYDROCHLORIDE
     Dosage: NI
  4. DIOVAN HCT [Concomitant]
     Active Substance: HYDROCHLOROTHIAZIDE\VALSARTAN
     Dosage: NI
  5. LONSURF [Suspect]
     Active Substance: TIPIRACIL HYDROCHLORIDE\TRIFLURIDINE
     Indication: COLON CANCER STAGE IV
     Dosage: CYCLE 2 THROUGH 4
     Route: 048
     Dates: start: 2016, end: 20161211
  6. MICARDIS HCT [Concomitant]
     Active Substance: HYDROCHLOROTHIAZIDE\TELMISARTAN
     Dosage: NI
  7. METOPROLOL. [Concomitant]
     Active Substance: METOPROLOL
     Dosage: NI
  8. VALSARTAN. [Concomitant]
     Active Substance: VALSARTAN
     Dosage: NI
  9. OMEPRAZOLE. [Concomitant]
     Active Substance: OMEPRAZOLE
     Dosage: NI

REACTIONS (4)
  - White blood cell count decreased [Unknown]
  - Dehydration [Unknown]
  - Procedural pain [Unknown]
  - Chest pain [Recovered/Resolved]

NARRATIVE: CASE EVENT DATE: 2016
